FAERS Safety Report 5951200-0 (Version None)
Quarter: 2008Q4

REPORT INFORMATION
  Report Type: 
  Country: None (occurrence: None)
  Receive Date: 20081111
  Receipt Date: 20081111
  Transmission Date: 20090506
  Serious: Yes (Other)
  Sender: FDA-Public Use
  Company Number: None

PATIENT
  Age: 64 Year
  Sex: Female
  Weight: 94.8018 kg

DRUGS (2)
  1. AVANDAMET [Suspect]
     Indication: DIABETES MELLITUS
     Dosage: 2 TIMES A DAY
     Dates: start: 20070122, end: 20081111
  2. JANUVIA [Suspect]
     Indication: DIABETES MELLITUS
     Dosage: 1 TIME A DAY
     Dates: start: 20080522, end: 20081111

REACTIONS (3)
  - FEAR [None]
  - OEDEMA PERIPHERAL [None]
  - WEIGHT INCREASED [None]
